FAERS Safety Report 7463132-X (Version None)
Quarter: 2011Q2

REPORT INFORMATION
  Report Type: 
  Country: None (occurrence: None)
  Receive Date: 20110506
  Receipt Date: 20110427
  Transmission Date: 20111010
  Serious: Yes (Other)
  Sender: FDA-Public Use
  Company Number: US-ROCHE-747637

PATIENT
  Sex: Female
  Weight: 78.5 kg

DRUGS (5)
  1. ACCUTANE [Suspect]
     Route: 065
     Dates: start: 19980326, end: 19991207
  2. ACCUTANE [Suspect]
     Route: 065
     Dates: start: 20000522, end: 20000925
  3. ACCUTANE [Suspect]
     Route: 065
     Dates: start: 20020227, end: 20020621
  4. ORTHO TRI-CYCLEN [Concomitant]
     Dosage: FREQUENCY: DAILY.
  5. ACCUTANE [Suspect]
     Route: 065
     Dates: start: 19991208, end: 20000415

REACTIONS (13)
  - POST-TRAUMATIC STRESS DISORDER [None]
  - MIGRAINE [None]
  - DEPRESSION [None]
  - AMNESIA [None]
  - MOOD SWINGS [None]
  - GASTROINTESTINAL INJURY [None]
  - INSOMNIA [None]
  - MENTAL DISORDER [None]
  - COLITIS ULCERATIVE [None]
  - CROHN'S DISEASE [None]
  - INFLAMMATORY BOWEL DISEASE [None]
  - INTESTINAL OBSTRUCTION [None]
  - IRRITABLE BOWEL SYNDROME [None]
